FAERS Safety Report 9272423 (Version 1)
Quarter: 2013Q2

REPORT INFORMATION
  Report Type: Spontaneous
  Country: AU (occurrence: AU)
  Receive Date: 20130506
  Receipt Date: 20130506
  Transmission Date: 20140414
  Serious: Yes (Hospitalization)
  Sender: FDA-Public Use
  Company Number: AU-BAYER-2013-055525

PATIENT
  Sex: Female

DRUGS (3)
  1. LEVLEN [Suspect]
  2. MICROGYNON [Suspect]
  3. MIRENA [Suspect]
     Dosage: 20 MCG/24HR, CONT
     Route: 015

REACTIONS (5)
  - Migraine with aura [Unknown]
  - Palpitations [Unknown]
  - Hypertension [Unknown]
  - Blindness [Unknown]
  - Device deployment issue [None]
